FAERS Safety Report 25945630 (Version 2)
Quarter: 2025Q4

REPORT INFORMATION
  Report Type: Spontaneous
  Country: EU (occurrence: EU)
  Receive Date: 20251021
  Receipt Date: 20251027
  Transmission Date: 20260117
  Serious: Yes (Other)
  Sender: ELI LILLY AND COMPANY
  Company Number: None

PATIENT
  Age: 27 Year
  Sex: Female
  Weight: 69 kg

DRUGS (4)
  1. OLUMIANT [Suspect]
     Active Substance: BARICITINIB
     Indication: Rheumatoid arthritis
     Dosage: 1 DOSAGE FORM, DAILY
     Route: 048
     Dates: start: 20230603, end: 20240215
  2. RINVOQ [Suspect]
     Active Substance: UPADACITINIB
     Indication: Rheumatoid arthritis
     Dosage: 1 DOSAGE FORM, DAILY
     Route: 048
     Dates: start: 20230418, end: 20230524
  3. RINVOQ [Suspect]
     Active Substance: UPADACITINIB
     Dosage: 1 DOSAGE FORM, QOD
     Route: 048
     Dates: start: 20230525, end: 20230602
  4. METHOTREXATE [Concomitant]
     Active Substance: METHOTREXATE
     Indication: Rheumatoid arthritis
     Dosage: 20 MG, WEEKLY (1/W)
     Route: 058
     Dates: start: 20230603, end: 20231211

REACTIONS (2)
  - Ovarian failure [Recovered/Resolved]
  - Amenorrhoea [Recovered/Resolved]

NARRATIVE: CASE EVENT DATE: 20231201
